FAERS Safety Report 6801543-3 (Version None)
Quarter: 2010Q2

REPORT INFORMATION
  Report Type: 
  Country: None (occurrence: None)
  Receive Date: 20100629
  Receipt Date: 20100621
  Transmission Date: 20101027
  Serious: Yes (Other)
  Sender: FDA-Public Use
  Company Number: US-SANOFI-AVENTIS-2010SA036273

PATIENT
  Age: 86 Year
  Sex: Female

DRUGS (3)
  1. PLAVIX [Suspect]
     Route: 048
     Dates: start: 20090101
  2. ANTIHYPERTENSIVES [Concomitant]
  3. CHOLESTEROL- AND TRIGLYCERIDE REDUCERS [Concomitant]

REACTIONS (3)
  - BLOOD BLISTER [None]
  - SKIN CANCER [None]
  - SKIN HAEMORRHAGE [None]
